FAERS Safety Report 14138428 (Version 1)
Quarter: 2017Q4

REPORT INFORMATION
  Report Type: Spontaneous
  Country: US (occurrence: US)
  Receive Date: 20171027
  Receipt Date: 20171027
  Transmission Date: 20180321
  Serious: No
  Sender: FDA-Public Use
  Company Number: US-ROCHE-1905515

PATIENT
  Sex: Male

DRUGS (2)
  1. TAMIFLU [Suspect]
     Active Substance: OSELTAMIVIR PHOSPHATE
     Dosage: ONGOING;YES
     Route: 048
     Dates: start: 20170308
  2. TAMIFLU [Suspect]
     Active Substance: OSELTAMIVIR PHOSPHATE
     Indication: INFLUENZA LIKE ILLNESS
     Dosage: ONGOING;NO
     Route: 048
     Dates: end: 201702

REACTIONS (2)
  - Diarrhoea [Recovering/Resolving]
  - Abdominal discomfort [Recovered/Resolved]
